FAERS Safety Report 6582964-3 (Version None)
Quarter: 2010Q1

REPORT INFORMATION
  Report Type: 
  Country: None (occurrence: None)
  Receive Date: 20100216
  Receipt Date: 20100211
  Transmission Date: 20100710
  Serious: Yes (Hospitalization, Other)
  Sender: FDA-Public Use
  Company Number: SE-ROCHE-600534

PATIENT
  Sex: Female
  Weight: 71 kg

DRUGS (11)
  1. BEVACIZUMAB [Suspect]
     Indication: BREAST CANCER
     Dosage: FORM: INFUSION, FREQUENCY: Q3WEEK ON DAY 1, TEMPORARILY INTERRUPTED.
     Route: 042
     Dates: start: 20081117, end: 20081208
  2. BEVACIZUMAB [Suspect]
     Route: 042
     Dates: start: 20081215
  3. EPIRUBICIN [Suspect]
     Indication: BREAST CANCER
     Dosage: FORM: INFUSION, FREQUENCY Q3WKS ON DAY 1, DATE OF LAST DOSE PRIOR TO SAE 17 NOV 2008.
     Route: 042
     Dates: start: 20081117, end: 20081208
  4. EPIRUBICIN [Suspect]
     Route: 042
     Dates: start: 20081215
  5. FLUOROURACIL [Suspect]
     Indication: BREAST CANCER
     Dosage: FREQUENCY Q3WKS ON DAY 1, DATE OF LAST DOSE PRIOR TO SAE 17 NOV 2008.
     Route: 042
     Dates: start: 20081117, end: 20081208
  6. FLUOROURACIL [Suspect]
     Route: 042
     Dates: start: 20081215
  7. CYCLOPHOSPHAMIDE [Suspect]
     Indication: BREAST CANCER
     Dosage: FORM: INFUSION, FREQUENCY Q3WKS ON DAY 1, DATE OF LAST DOSE PRIOR TO SAE 17 NOV 2008.
     Route: 042
     Dates: start: 20081117, end: 20081208
  8. CYCLOPHOSPHAMIDE [Suspect]
     Route: 042
     Dates: start: 20081215
  9. LEVOTHYROXINE SODIUM [Concomitant]
     Dates: start: 19941201
  10. CETIRIZIN [Concomitant]
     Dates: start: 19860101
  11. PANTOPRAZOL [Concomitant]
     Dates: start: 19930101

REACTIONS (2)
  - ABDOMINAL PAIN [None]
  - DIVERTICULITIS [None]
